FAERS Safety Report 20411815 (Version 2)
Quarter: 2022Q1

REPORT INFORMATION
  Report Type: Spontaneous
  Country: TH (occurrence: TH)
  Receive Date: 20220201
  Receipt Date: 20220324
  Transmission Date: 20220423
  Serious: Yes (Life-Threatening, Other)
  Sender: FDA-Public Use
  Company Number: TH-MLMSERVICE-20220120-3327617-1

PATIENT
  Age: 63 Year
  Sex: Female

DRUGS (4)
  1. ELOXATIN [Suspect]
     Active Substance: OXALIPLATIN
     Indication: Colorectal adenocarcinoma
     Dosage: 85 MG/ M2 FOR TWO HOURS ON DAY 1 FOR 3 CYCLES), INFUSION
     Route: 042
  2. FLUOROURACIL [Suspect]
     Active Substance: FLUOROURACIL
     Indication: Colorectal adenocarcinoma
     Dosage: 600 MG/M2 FOR 22 HOURS ON DAYS 1 AND 2 AND 600 MG/M^2 FOR 22 HOURS ON DAYS 1 AND 2
     Route: 042
  3. FLUOROURACIL [Suspect]
     Active Substance: FLUOROURACIL
     Dosage: 400 MG/M2 ON DAYS 1 AND 2
     Route: 042
  4. LEUCOVORIN [Suspect]
     Active Substance: LEUCOVORIN
     Indication: Colorectal adenocarcinoma
     Dosage: 200 MG/M2 FOR TWO HOURS ON DAYS 1 AND 2 FOR 3 CYCLES)
     Route: 042

REACTIONS (5)
  - Cerebral venous sinus thrombosis [Recovered/Resolved]
  - Altered state of consciousness [Recovered/Resolved]
  - Deep vein thrombosis [Recovered/Resolved]
  - Haemorrhagic infarction [Recovered/Resolved]
  - Cerebral haematoma [Recovered/Resolved]
